FAERS Safety Report 23347440 (Version 2)
Quarter: 2024Q1

REPORT INFORMATION
  Report Type: Spontaneous
  Country: CN (occurrence: CN)
  Receive Date: 20231228
  Receipt Date: 20240103
  Transmission Date: 20240410
  Serious: Yes (Other)
  Sender: FDA-Public Use
  Company Number: CN-PFIZER INC-202300453342

PATIENT
  Age: 6 Month
  Sex: Male
  Weight: 7 kg

DRUGS (15)
  1. LINEZOLID [Suspect]
     Active Substance: LINEZOLID
     Dosage: 0.07 G, 3X/DAY
  2. ISONIAZID [Suspect]
     Active Substance: ISONIAZID
     Dosage: 100 MG, 1X/DAY
  3. MANNITOL [Concomitant]
     Active Substance: MANNITOL
     Dosage: 17.5 ML, 4X/DAY
  4. MANNITOL [Concomitant]
     Active Substance: MANNITOL
     Dosage: 17.5 ML, 3X/DAY
  5. MANNITOL [Concomitant]
     Active Substance: MANNITOL
     Dosage: 17.5 ML, 2X/DAY
  6. VALPROATE SODIUM [Concomitant]
     Active Substance: VALPROATE SODIUM
     Dosage: 119 MG, 2X/DAY
  7. LEVETIRACETAM [Concomitant]
     Active Substance: LEVETIRACETAM
     Dosage: 100 MG, 2X/DAY
  8. DEXAMETHASONE [Concomitant]
     Active Substance: DEXAMETHASONE
     Dosage: 3 MG, 1X/DAY
  9. RIFAMPIN [Concomitant]
     Active Substance: RIFAMPIN
     Dosage: 0.14 G, 1X/DAY
  10. MEROPENEM [Concomitant]
     Active Substance: MEROPENEM
     Dosage: 0.14 G, 3X/DAY
  11. MIDAZOLAM [Concomitant]
     Active Substance: MIDAZOLAM
  12. OMEPRAZOLE [Concomitant]
     Active Substance: OMEPRAZOLE
  13. MILRINONE [Concomitant]
     Active Substance: MILRINONE
  14. FUROSEMIDE [Concomitant]
     Active Substance: FUROSEMIDE
  15. FLUCONAZOLE [Concomitant]
     Active Substance: FLUCONAZOLE
     Indication: Antifungal treatment
     Dosage: 0.042 G, 1X/DAY

REACTIONS (1)
  - Optic nerve injury [Recovering/Resolving]
